FAERS Safety Report 11455994 (Version 1)
Quarter: 2015Q3

REPORT INFORMATION
  Report Type: Spontaneous
  Country: SG (occurrence: SG)
  Receive Date: 20150903
  Receipt Date: 20150903
  Transmission Date: 20151125
  Serious: Yes (Other)
  Sender: FDA-Public Use
  Company Number: SG-BAYER-2015-409702

PATIENT
  Age: 66 Year
  Sex: Female

DRUGS (1)
  1. ACETYLSALICYLIC ACID (} 100 MG) [Suspect]
     Active Substance: ASPIRIN

REACTIONS (2)
  - Respiratory arrest [Unknown]
  - Unevaluable event [Unknown]

NARRATIVE: CASE EVENT DATE: 20120101
